FAERS Safety Report 22541690 (Version 1)
Quarter: 2023Q2

REPORT INFORMATION
  Report Type: Spontaneous
  Country: CN (occurrence: None)
  Receive Date: 20230609
  Receipt Date: 20230609
  Transmission Date: 20230722
  Serious: Yes (Other)
  Sender: FDA-Public Use
  Company Number: 2023A130965

PATIENT
  Age: 21216 Day
  Sex: Male
  Weight: 75 kg

DRUGS (3)
  1. DAPAGLIFLOZIN [Suspect]
     Active Substance: DAPAGLIFLOZIN
     Route: 048
     Dates: start: 20230404, end: 20230529
  2. FEBUXOSTAT [Concomitant]
     Active Substance: FEBUXOSTAT
     Route: 048
  3. RHUBARB SODIUM BICARBONATE [Concomitant]
     Route: 048

REACTIONS (4)
  - Renal failure [Unknown]
  - Cardiac failure [Unknown]
  - Tachypnoea [Recovered/Resolved]
  - Oedema peripheral [Unknown]

NARRATIVE: CASE EVENT DATE: 20230529
